FAERS Safety Report 17391193 (Version 5)
Quarter: 2022Q1

REPORT INFORMATION
  Report Type: Report from Study
  Country: US (occurrence: US)
  Receive Date: 20200207
  Receipt Date: 20220328
  Transmission Date: 20220423
  Serious: Yes (Hospitalization)
  Sender: FDA-Public Use
  Company Number: US-ABBVIE-20K-163-3261851-00

PATIENT
  Age: 61 Year
  Sex: Male
  Weight: 119 kg

DRUGS (23)
  1. HUMIRA [Suspect]
     Active Substance: ADALIMUMAB
     Indication: Colitis ulcerative
     Route: 058
     Dates: start: 201212, end: 20171002
  2. HUMIRA [Suspect]
     Active Substance: ADALIMUMAB
     Route: 058
     Dates: start: 20171005, end: 20181123
  3. HUMIRA [Suspect]
     Active Substance: ADALIMUMAB
     Route: 058
     Dates: start: 20181122, end: 20181207
  4. HUMIRA [Suspect]
     Active Substance: ADALIMUMAB
     Route: 058
     Dates: start: 20181207, end: 20190325
  5. HUMIRA [Suspect]
     Active Substance: ADALIMUMAB
     Route: 058
     Dates: start: 20190405
  6. AZATHIOPRINE [Suspect]
     Active Substance: AZATHIOPRINE
     Indication: Colitis ulcerative
     Dosage: 100 MG IN AM AND 150 MG IN PM
     Route: 048
     Dates: start: 2009, end: 20181123
  7. AZATHIOPRINE [Suspect]
     Active Substance: AZATHIOPRINE
     Dosage: 100 MG IN AM AND 150 MG IN PM
     Route: 048
     Dates: start: 20181207, end: 20190330
  8. AZATHIOPRINE [Suspect]
     Active Substance: AZATHIOPRINE
     Dosage: 150 MG IN AM AND 150 MG IN PM
     Route: 048
     Dates: start: 20190407
  9. CALCIUM CARBONATE\CHOLECALCIFEROL [Concomitant]
     Active Substance: CALCIUM CARBONATE\CHOLECALCIFEROL
     Indication: Mineral supplementation
     Dosage: 600MG/400IU
     Route: 048
     Dates: start: 20190402, end: 20190502
  10. NUVIGIL [Concomitant]
     Active Substance: ARMODAFINIL
     Indication: Hypersomnia
     Route: 048
     Dates: start: 201209
  11. CATAPRES [Concomitant]
     Active Substance: CLONIDINE HYDROCHLORIDE
     Indication: Hypertension
     Route: 048
     Dates: start: 20120222
  12. NEURONTIN [Concomitant]
     Active Substance: GABAPENTIN
     Indication: Fibromyalgia
     Route: 048
     Dates: start: 201209, end: 201907
  13. ZOLOFT [Concomitant]
     Active Substance: SERTRALINE HYDROCHLORIDE
     Indication: Depression
     Route: 048
     Dates: start: 20130222, end: 20190324
  14. ZOLOFT [Concomitant]
     Active Substance: SERTRALINE HYDROCHLORIDE
     Route: 048
     Dates: start: 20190325
  15. ASACOL [Concomitant]
     Active Substance: MESALAMINE
     Indication: Colitis ulcerative
     Route: 048
     Dates: start: 2009
  16. CANNABIS SATIVA SUBSP. INDICA TOP [Concomitant]
     Active Substance: CANNABIS SATIVA SUBSP. INDICA TOP
     Indication: Arthralgia
     Dosage: 1/4 COOKIE
     Route: 048
     Dates: start: 201509
  17. CANNABIS SATIVA SUBSP. INDICA TOP [Concomitant]
     Active Substance: CANNABIS SATIVA SUBSP. INDICA TOP
     Indication: Arthritis
  18. CELESTONE [Concomitant]
     Active Substance: BETAMETHASONE
     Indication: Osteoarthritis
     Route: 014
     Dates: start: 20180424, end: 20180424
  19. ASPIRIN [Concomitant]
     Active Substance: ASPIRIN
     Indication: Thrombosis prophylaxis
     Route: 048
     Dates: start: 20190402, end: 20190502
  20. VITAMIN D2 [Concomitant]
     Active Substance: ERGOCALCIFEROL
     Indication: Vitamin supplementation
     Route: 048
     Dates: start: 20190402, end: 20190502
  21. PERCOCET [Concomitant]
     Active Substance: ACETAMINOPHEN\OXYCODONE HYDROCHLORIDE
     Indication: Procedural pain
     Dosage: DOSE - 5-325 MILLIGRAM?FREQUENCY- EVERY 6 HOURS AS NEEDED
     Route: 048
     Dates: start: 20190402, end: 20190502
  22. MOBIC [Concomitant]
     Active Substance: MELOXICAM
     Indication: Arthralgia
     Route: 048
     Dates: start: 20191107
  23. MOBIC [Concomitant]
     Active Substance: MELOXICAM
     Indication: Arthralgia

REACTIONS (1)
  - Foot deformity [Recovered/Resolved]

NARRATIVE: CASE EVENT DATE: 20190130
